FAERS Safety Report 9037752 (Version 2)
Quarter: 2013Q2

REPORT INFORMATION
  Report Type: Spontaneous
  Country: US (occurrence: US)
  Receive Date: 20130129
  Receipt Date: 20130417
  Transmission Date: 20140414
  Serious: No
  Sender: FDA-Public Use
  Company Number: US-009507513-1301USA012457

PATIENT
  Age: 78 Year
  Sex: Male

DRUGS (3)
  1. JANUMET XR [Suspect]
     Dosage: 100MG/1000 MG
     Route: 048
     Dates: start: 201212
  2. CARBIDOPA (+) LEVODOPA [Concomitant]
     Dosage: 75 MG, Q6H
  3. LISINOPRIL [Concomitant]
     Dosage: 5 MG, UNK

REACTIONS (1)
  - Parkinson^s disease [Unknown]
